FAERS Safety Report 5360411-7 (Version None)
Quarter: 2007Q2

REPORT INFORMATION
  Report Type: 
  Country: None (occurrence: None)
  Receive Date: 20070612
  Receipt Date: 20070531
  Transmission Date: 20071010
  Serious: Yes (Hospitalization)
  Sender: FDA-Public Use
  Company Number: ABNYL-07-0468

PATIENT
  Age: 73 Year
  Sex: Female

DRUGS (6)
  1. ABRAXANE [Suspect]
     Indication: BREAST CANCER
     Dosage: INTRAVENOUS
     Route: 042
     Dates: start: 20070530
  2. DECADRON [Concomitant]
  3. BENADRYL [Concomitant]
  4. ANZEMET [Concomitant]
  5. ARANESP [Concomitant]
  6. ZOMETA [Concomitant]

REACTIONS (2)
  - INCONTINENCE [None]
  - LOSS OF CONSCIOUSNESS [None]
